FAERS Safety Report 8207078-8 (Version None)
Quarter: 2012Q1

REPORT INFORMATION
  Report Type: 
  Country: None (occurrence: None)
  Receive Date: 20120314
  Receipt Date: 20120307
  Transmission Date: 20120608
  Serious: Yes (Hospitalization)
  Sender: FDA-Public Use
  Company Number: US-BAYER-2012-023561

PATIENT
  Age: 42 Year
  Sex: Female
  Weight: 129.25 kg

DRUGS (14)
  1. STOOL SOFTENER [Concomitant]
  2. HYDROCHLOROTHIAZIDE [Concomitant]
     Dosage: 25 MG, QD
     Route: 048
     Dates: start: 20080108, end: 20100609
  3. LISINOPRIL [Concomitant]
     Dosage: 50 ?G, QD
     Route: 048
     Dates: start: 20080208, end: 20100615
  4. PRAVACHOL [Concomitant]
     Dosage: 40 MG, HS
     Route: 048
     Dates: start: 20080218, end: 20100609
  5. LEVOTHYROXINE SODIUM [Concomitant]
     Dosage: 50 ?G, QD
     Route: 048
     Dates: start: 20090123, end: 20100621
  6. VITAMIN D [Concomitant]
     Dosage: UNK UNK, QD
     Route: 048
     Dates: start: 20100317, end: 20100609
  7. NORETHINDRONE ACETATE [Concomitant]
  8. MELOXICAM [Concomitant]
     Dosage: 15 MG, UNK
     Route: 048
     Dates: start: 20090701, end: 20100315
  9. FLEXERIL [Concomitant]
     Dosage: UNK UNK, PRN
     Route: 048
  10. CALCIUM [Concomitant]
     Route: 048
  11. YAZ [Suspect]
  12. YASMIN [Suspect]
  13. CRANBERRY EXTRACT [Concomitant]
     Dosage: UNK UNK, QD
     Route: 048
  14. FISH OIL [Concomitant]
     Dosage: UNK UNK, QD
     Route: 048

REACTIONS (1)
  - PULMONARY EMBOLISM [None]
